FAERS Safety Report 7480038-0 (Version None)
Quarter: 2011Q2

REPORT INFORMATION
  Report Type: 
  Country: None (occurrence: None)
  Receive Date: 20110516
  Receipt Date: 20110505
  Transmission Date: 20111010
  Serious: No
  Sender: FDA-Public Use
  Company Number: US-BIOGENIDEC-2010BI044945

PATIENT
  Age: 38 Year
  Sex: Female

DRUGS (3)
  1. STEROIDS (NOS) [Concomitant]
     Indication: PREMEDICATION
  2. TYSABRI [Suspect]
     Indication: MULTIPLE SCLEROSIS
     Route: 042
     Dates: start: 20100826
  3. BENADRYL [Concomitant]
     Indication: PREMEDICATION

REACTIONS (14)
  - RASH PAPULAR [None]
  - MULTIPLE SCLEROSIS RELAPSE [None]
  - HYPERSENSITIVITY [None]
  - PRURITUS [None]
  - NASOPHARYNGITIS [None]
  - GASTROENTERITIS VIRAL [None]
  - FLUSHING [None]
  - IMMUNOSUPPRESSION [None]
  - FEELING HOT [None]
  - BODY TEMPERATURE INCREASED [None]
  - FATIGUE [None]
  - DERMATITIS PSORIASIFORM [None]
  - POOR VENOUS ACCESS [None]
  - INFECTION [None]
